FAERS Safety Report 12603164 (Version 1)
Quarter: 2016Q3

REPORT INFORMATION
  Report Type: Report from Study
  Country: BR (occurrence: BR)
  Receive Date: 20160728
  Receipt Date: 20160728
  Transmission Date: 20161109
  Serious: Yes (Other)
  Sender: FDA-Public Use
  Company Number: PHHY2016BR102027

PATIENT
  Sex: Female
  Weight: 95 kg

DRUGS (1)
  1. FORASEQ [Suspect]
     Active Substance: BUDESONIDE\FORMOTEROL FUMARATE
     Indication: BRONCHITIS
     Dosage: 1 DF(BUDESONIDE 12 UG, FORMOTEROL FUMARATE 400 UG), BID (1 PUFF IN MORNING AND ANOTHER AT NIGHT)
     Route: 055
     Dates: start: 2013

REACTIONS (5)
  - Glaucoma [Recovering/Resolving]
  - Hypertension [Unknown]
  - Incorrect dose administered [Unknown]
  - Product use issue [Unknown]
  - Visual impairment [Unknown]
